FAERS Safety Report 24366479 (Version 1)
Quarter: 2024Q3

REPORT INFORMATION
  Report Type: Spontaneous
  Country: PL (occurrence: PL)
  Receive Date: 20240926
  Receipt Date: 20240926
  Transmission Date: 20241016
  Serious: Yes (Other)
  Sender: BRACCO
  Company Number: None

PATIENT
  Age: 74 Year
  Sex: Female

DRUGS (3)
  1. MULTIHANCE [Suspect]
     Active Substance: GADOBENATE DIMEGLUMINE
     Indication: Magnetic resonance imaging hepatobiliary
     Dosage: 5 ML, SINGLE DOSE
     Route: 042
     Dates: start: 20201006, end: 20201006
  2. Corhydron [Concomitant]
     Indication: Magnetic resonance imaging hepatobiliary
     Dosage: 200 MG, SINGLE DOSE
     Route: 042
     Dates: start: 20201006, end: 20201006
  3. SODIUM CHLORIDE [Concomitant]
     Active Substance: SODIUM CHLORIDE
     Indication: Magnetic resonance imaging hepatobiliary
     Dosage: 500 ML, SINGLE DOSE
     Route: 042
     Dates: start: 20201006, end: 20201006

REACTIONS (3)
  - Asthenia [Recovered/Resolved]
  - Heart rate increased [Recovered/Resolved]
  - Dyspnoea [Recovered/Resolved]

NARRATIVE: CASE EVENT DATE: 20201006
